FAERS Safety Report 18409436 (Version 1)
Quarter: 2020Q4

REPORT INFORMATION
  Report Type: Spontaneous
  Country: US (occurrence: US)
  Receive Date: 20201021
  Receipt Date: 20201021
  Transmission Date: 20210114
  Serious: No
  Sender: FDA-Public Use
  Company Number: US-ELI_LILLY_AND_COMPANY-US202010008801

PATIENT
  Sex: Female

DRUGS (1)
  1. TRULICITY [Suspect]
     Active Substance: DULAGLUTIDE
     Indication: PRODUCT USED FOR UNKNOWN INDICATION
     Dosage: 0.75 MG, UNKNOWN
     Route: 058
     Dates: start: 202008

REACTIONS (11)
  - Oral candidiasis [Recovered/Resolved]
  - Stomatitis [Not Recovered/Not Resolved]
  - Nausea [Unknown]
  - Plicated tongue [Not Recovered/Not Resolved]
  - Feeding disorder [Unknown]
  - Necrotising ulcerative gingivostomatitis [Unknown]
  - Taste disorder [Not Recovered/Not Resolved]
  - Diarrhoea [Recovering/Resolving]
  - Skin fissures [Unknown]
  - Mouth ulceration [Not Recovered/Not Resolved]
  - Abdominal pain upper [Recovering/Resolving]
